FAERS Safety Report 6191478-4 (Version None)
Quarter: 2009Q2

REPORT INFORMATION
  Report Type: 
  Country: None (occurrence: None)
  Receive Date: 20090515
  Receipt Date: 20090507
  Transmission Date: 20091009
  Serious: Yes (Hospitalization)
  Sender: FDA-Public Use
  Company Number: US-JNJFOC-20090501332

PATIENT
  Sex: Male
  Weight: 56 kg

DRUGS (2)
  1. FENTANYL [Suspect]
     Indication: DRUG USE FOR UNKNOWN INDICATION
     Route: 062
  2. SUNITINIB [Suspect]
     Indication: NON-SMALL CELL LUNG CANCER
     Dosage: CYCLIC OD; 4WEEKS ON FOLLOWED BY 2 WEEKS REST
     Route: 048

REACTIONS (6)
  - CONFUSIONAL STATE [None]
  - HYPERCALCAEMIA [None]
  - NAUSEA [None]
  - NON-SMALL CELL LUNG CANCER [None]
  - OVERDOSE [None]
  - VOMITING [None]
